FAERS Safety Report 7318763-4 (Version None)
Quarter: 2011Q1

REPORT INFORMATION
  Report Type: 
  Country: None (occurrence: None)
  Receive Date: 20110228
  Receipt Date: 20100322
  Transmission Date: 20110831
  Serious: No
  Sender: FDA-Public Use
  Company Number: A0851679A

PATIENT
  Age: 59 Year
  Sex: Female
  Weight: 61.4 kg

DRUGS (6)
  1. HYZAAR [Concomitant]
     Indication: HYPERTENSION
     Dates: start: 20050101
  2. IMITREX [Suspect]
     Indication: MIGRAINE
     Route: 042
  3. ACTONEL [Concomitant]
     Indication: OSTEOPENIA
     Dosage: 35MG WEEKLY
     Dates: start: 20050101
  4. ATENOLOL [Concomitant]
     Indication: HYPERTENSION
     Dosage: 25MG PER DAY
     Dates: start: 20060101
  5. TRAZODONE [Concomitant]
     Indication: SLEEP DISORDER
     Dosage: 50MG AT NIGHT
     Dates: start: 20100201
  6. SUMATRIPTAN [Suspect]
     Dosage: 1INJ AS REQUIRED
     Route: 042

REACTIONS (4)
  - INJECTION SITE PAIN [None]
  - CHEST DISCOMFORT [None]
  - DRUG INEFFECTIVE [None]
  - PRODUCT QUALITY ISSUE [None]
